FAERS Safety Report 19595471 (Version 1)
Quarter: 2021Q3

REPORT INFORMATION
  Report Type: Spontaneous
  Country: US (occurrence: US)
  Receive Date: 20210722
  Receipt Date: 20210722
  Transmission Date: 20211014
  Serious: No
  Sender: FDA-Public Use
  Company Number: US-ANTARES PHARMA, INC.-2021-SPO-XY-0036

PATIENT

DRUGS (1)
  1. XYOSTED [Suspect]
     Active Substance: TESTOSTERONE ENANTHATE
     Indication: BLOOD TESTOSTERONE DECREASED
     Dosage: 75 MILLIGRAM, QWK
     Route: 058

REACTIONS (4)
  - Dizziness [Unknown]
  - Energy increased [Unknown]
  - Bed rest [Unknown]
  - Therapeutic response delayed [Unknown]
